FAERS Safety Report 18089621 (Version 1)
Quarter: 2020Q3

REPORT INFORMATION
  Report Type: Spontaneous
  Country: CN (occurrence: CN)
  Receive Date: 20200729
  Receipt Date: 20200729
  Transmission Date: 20201103
  Serious: Yes (Other)
  Sender: FDA-Public Use
  Company Number: CN-ZO SKIN HEALTH-2020ZOS00009

PATIENT
  Age: 65 Year
  Sex: Female

DRUGS (2)
  1. TRETINOIN. [Suspect]
     Active Substance: TRETINOIN
     Dosage: SEVERAL TIMES DAILY
     Route: 061
  2. TRETINOIN. [Suspect]
     Active Substance: TRETINOIN
     Indication: SKIN DISORDER
     Route: 061

REACTIONS (3)
  - Enterobacter infection [Recovered/Resolved]
  - Pyogenic granuloma [Recovered/Resolved]
  - Inappropriate schedule of product administration [Unknown]
